FAERS Safety Report 25962782 (Version 1)
Quarter: 2025Q4

REPORT INFORMATION
  Report Type: Spontaneous
  Country: US (occurrence: None)
  Receive Date: 20251025
  Receipt Date: 20251025
  Transmission Date: 20260117
  Serious: Yes (Hospitalization)
  Sender: FDA-CTU
  Company Number: None

PATIENT
  Age: 61 Year
  Sex: Female

DRUGS (3)
  1. TERIFLUNOMIDE [Suspect]
     Active Substance: TERIFLUNOMIDE
     Indication: Multiple sclerosis
     Dosage: TAKE 1 TABLET (14 MG) BY MOUTH ONCE DAILY?
     Route: 048
     Dates: start: 20240731
  2. LORAZEPAM [Concomitant]
     Active Substance: LORAZEPAM
  3. TERBINAFINE [Concomitant]
     Active Substance: TERBINAFINE

REACTIONS (1)
  - Chronic kidney disease [None]

NARRATIVE: CASE EVENT DATE: 20251003
